FAERS Safety Report 15869871 (Version 2)
Quarter: 2019Q1

REPORT INFORMATION
  Report Type: Spontaneous
  Country: FR (occurrence: FR)
  Receive Date: 20190125
  Receipt Date: 20190206
  Transmission Date: 20190417
  Serious: Yes (Other)
  Sender: FDA-Public Use
  Company Number: FR-MYLANLABS-2019M1005239

PATIENT
  Age: 78 Year
  Sex: Male

DRUGS (7)
  1. PREDNISONE. [Suspect]
     Active Substance: PREDNISONE
     Indication: CYSTOID MACULAR OEDEMA
     Dosage: 14 MILLIGRAM, QD
     Route: 065
  2. TOCILIZUMAB. [Suspect]
     Active Substance: TOCILIZUMAB
     Indication: PRODUCT USED FOR UNKNOWN INDICATION
     Dosage: 8 MILLIGRAM/KILOGRAM, MONTHLY
     Route: 065
     Dates: start: 201712
  3. PREDNISONE. [Suspect]
     Active Substance: PREDNISONE
     Dosage: 12 MILLIGRAM, QD
     Route: 065
     Dates: end: 201802
  4. AZATHIOPRINE. [Suspect]
     Active Substance: AZATHIOPRINE
     Indication: PRODUCT USED FOR UNKNOWN INDICATION
     Dosage: 1 UNK, QMO
     Route: 065
     Dates: start: 201712
  5. PREDNISONE. [Suspect]
     Active Substance: PREDNISONE
     Dosage: 20 MILLIGRAM, QD
     Route: 065
  6. SOLU-MEDROL [Suspect]
     Active Substance: METHYLPREDNISOLONE SODIUM SUCCINATE
     Indication: CYSTOID MACULAR OEDEMA
     Dosage: 500 MG IN BOLUS (3 TIMES) WITH ORAL RELAY
     Route: 065
  7. MYCOPHENOLATE MOFETIL. [Suspect]
     Active Substance: MYCOPHENOLATE MOFETIL
     Indication: CYSTOID MACULAR OEDEMA
     Dosage: 2 GRAM, QD
     Route: 065
     Dates: start: 201708, end: 201802

REACTIONS (5)
  - Disease recurrence [Recovered/Resolved]
  - Cystoid macular oedema [Recovered/Resolved]
  - Hepatitis [Unknown]
  - Treatment failure [Unknown]
  - Product use in unapproved indication [Unknown]

NARRATIVE: CASE EVENT DATE: 201706
